FAERS Safety Report 7597033-3 (Version None)
Quarter: 2011Q3

REPORT INFORMATION
  Report Type: 
  Country: None (occurrence: None)
  Receive Date: 20110708
  Receipt Date: 20110705
  Transmission Date: 20111222
  Serious: Yes (Disabling)
  Sender: FDA-Public Use
  Company Number: GB-PFIZER INC-2011079909

PATIENT
  Age: 80 Year
  Sex: Female
  Weight: 67 kg

DRUGS (11)
  1. HEPATYRIX [Concomitant]
     Dates: start: 20100701, end: 20100701
  2. SIMVASTATIN [Concomitant]
     Dosage: 20 MG, 1X/DAY
     Dates: start: 20101214
  3. DIPROBASE CREAM [Concomitant]
     Dosage: 500 G, AS NEEDED
     Dates: start: 20110413
  4. LOPERAMIDE HYDROCHLORIDE [Concomitant]
     Indication: DIARRHOEA
     Dosage: 2 MG, AS NEEDED
     Dates: start: 20100823
  5. QUINAPRIL HCL [Suspect]
     Indication: HYPERTENSION
     Dosage: 20 MG, UNK
     Route: 048
     Dates: start: 20070801, end: 20110627
  6. HEPATITIS A VACCINE [Concomitant]
     Dates: start: 20080305, end: 20080305
  7. FELODIPINE [Concomitant]
     Dosage: 2.5 MG, 1X/DAY
     Dates: start: 20101214
  8. BENDROFLUMETHIAZIDE [Concomitant]
     Dosage: 2.5 MG, 1X/DAY
     Dates: start: 20101214
  9. PERINDOPRIL ERBUMINE [Concomitant]
     Dosage: 2 MG, 1X/DAY
     Dates: start: 20110620
  10. HEPATITIS A VACCINE [Concomitant]
     Dates: start: 20100628, end: 20100628
  11. FELODIPINE [Concomitant]
     Dosage: 2.5 MG, 1X/DAY
     Dates: start: 20100708, end: 20100902

REACTIONS (1)
  - STRABISMUS [None]
